FAERS Safety Report 25690580 (Version 1)
Quarter: 2025Q3

REPORT INFORMATION
  Report Type: Spontaneous
  Country: US (occurrence: None)
  Receive Date: 20250818
  Receipt Date: 20250818
  Transmission Date: 20251021
  Serious: Yes (Hospitalization)
  Sender: FDA-CTU
  Company Number: None

PATIENT
  Sex: Male

DRUGS (11)
  1. XOLAIR [Suspect]
     Active Substance: OMALIZUMAB
     Indication: Asthma
     Dosage: FREQUENCY : MONTHLY;?
     Route: 058
     Dates: start: 20250724
  2. AZITHROMYCIN [Concomitant]
     Active Substance: AZITHROMYCIN
  3. CRESTOR [Concomitant]
     Active Substance: ROSUVASTATIN CALCIUM
  4. DIVALPROEX SODIUM [Concomitant]
     Active Substance: DIVALPROEX SODIUM
  5. IBUPROFEN TAB 400MG [Concomitant]
  6. LEVOFLOXACIN TAB 500MG [Concomitant]
  7. LEVOTHYROXIN TAB 25MCG [Concomitant]
  8. MULTIVITAMIN TAB ADLT 50+ [Concomitant]
  9. NUCALA INJ 1 00MG/ML [Concomitant]
  10. VIMPAT TAB 50MG [Concomitant]
  11. XYZAL TAB 5MG [Concomitant]

REACTIONS (2)
  - Pneumonia [None]
  - Systemic infection [None]
